FAERS Safety Report 6535731-0 (Version None)
Quarter: 2010Q1

REPORT INFORMATION
  Report Type: 
  Country: None (occurrence: None)
  Receive Date: 20100113
  Receipt Date: 20091222
  Transmission Date: 20100710
  Serious: Yes (Death, Hospitalization, Other)
  Sender: FDA-Public Use
  Company Number: PHHY2009JP60292

PATIENT
  Sex: Female
  Weight: 44 kg

DRUGS (9)
  1. ICL670A ICL+DISTAB [Suspect]
     Indication: IRON OVERLOAD
     Dosage: 1000 MG DAILY
     Route: 048
     Dates: start: 20090217, end: 20090526
  2. ICL670A ICL+DISTAB [Suspect]
     Indication: MYELODYSPLASTIC SYNDROME
  3. NEORAL [Concomitant]
     Indication: MYELODYSPLASTIC SYNDROME
     Dosage: 300 MG, UNK
     Route: 048
     Dates: start: 20090217, end: 20090228
  4. DESFERAL [Concomitant]
     Indication: IRON OVERLOAD
     Dosage: UNK
     Route: 030
     Dates: start: 20090527
  5. DESFERAL [Concomitant]
     Dosage: UNK
     Route: 041
     Dates: start: 20090526
  6. PRIMOBOLAN [Concomitant]
     Indication: MYELODYSPLASTIC SYNDROME
     Dosage: 45 MG, UNK
     Route: 048
     Dates: start: 20090217, end: 20090629
  7. BAKTAR [Concomitant]
     Indication: MYELODYSPLASTIC SYNDROME
     Dosage: 2 DF, UNK
     Route: 048
     Dates: start: 20090217, end: 20090629
  8. DIFLUCAN [Concomitant]
     Indication: MYELODYSPLASTIC SYNDROME
     Dosage: 200 MG, UNK
     Route: 048
     Dates: start: 20090217, end: 20090526
  9. RED BLOOD CELLS, LEUCOCYTE DEPLETED [Concomitant]
     Dosage: 2 UNITS EVERY WEEK
     Dates: start: 20060725, end: 20090723

REACTIONS (4)
  - CEREBRAL HAEMORRHAGE [None]
  - CORD BLOOD TRANSPLANT THERAPY [None]
  - DISSEMINATED INTRAVASCULAR COAGULATION [None]
  - INFECTION [None]
